FAERS Safety Report 25668359 (Version 2)
Quarter: 2025Q3

REPORT INFORMATION
  Report Type: Spontaneous
  Country: US (occurrence: US)
  Receive Date: 20250812
  Receipt Date: 20250917
  Transmission Date: 20251020
  Serious: No
  Sender: JOHNSON AND JOHNSON
  Company Number: US-JNJFOC-20250812530

PATIENT
  Sex: Male

DRUGS (1)
  1. SPRAVATO [Suspect]
     Active Substance: ESKETAMINE
     Indication: Product used for unknown indication

REACTIONS (6)
  - Product dose omission issue [Unknown]
  - Condition aggravated [Unknown]
  - Poor quality sleep [Unknown]
  - Contusion [Unknown]
  - Panic attack [Unknown]
  - Aggression [Unknown]
